FAERS Safety Report 6719269-3 (Version None)
Quarter: 2010Q2

REPORT INFORMATION
  Report Type: 
  Country: None (occurrence: None)
  Receive Date: 20100507
  Receipt Date: 20100423
  Transmission Date: 20101027
  Serious: Yes (Hospitalization)
  Sender: FDA-Public Use
  Company Number: MC201000139

PATIENT
  Age: 63 Year
  Sex: Male
  Weight: 86 kg

DRUGS (3)
  1. ANGIOMAX [Suspect]
     Indication: ANTIPLATELET THERAPY
     Dosage: SEE IMAGE
     Route: 042
  2. ASPIRIN (ACELUSALICYLIC ACID) [Concomitant]
  3. PLAVIX [Concomitant]

REACTIONS (2)
  - ANGINA UNSTABLE [None]
  - THROMBOSIS IN DEVICE [None]
